FAERS Safety Report 7381287-2 (Version None)
Quarter: 2011Q1

REPORT INFORMATION
  Report Type: 
  Country: None (occurrence: None)
  Receive Date: 20110321
  Receipt Date: 20110311
  Transmission Date: 20110831
  Serious: Yes (Hospitalization)
  Sender: FDA-Public Use
  Company Number: UTC-005358

PATIENT
  Age: 71 Year
  Sex: Female
  Weight: 62.7 kg

DRUGS (9)
  1. TRACLEER [Concomitant]
  2. PAXIL [Concomitant]
  3. PERCOCET [Concomitant]
  4. REMODULIN [Suspect]
     Indication: PULMONARY ARTERIAL HYPERTENSION
     Dosage: 33.12 UG/KG (0.023 UG/KG,1 IN 1 MIN),SUBCUTANEOUS
     Route: 058
     Dates: start: 20100922
  5. OXYGEN (OXYGEN) [Concomitant]
  6. LORAZEPAM (LORAZEPAM) (15 MILLIGRAM) [Concomitant]
  7. DIGOXIN (DIGOXIN) (0.125 MILLIGRAM) [Concomitant]
  8. COUMADIN [Concomitant]
  9. NEURONTIN [Concomitant]

REACTIONS (8)
  - INFUSION SITE ABSCESS [None]
  - DILATATION ATRIAL [None]
  - FOREARM FRACTURE [None]
  - FALL [None]
  - SUBARACHNOID HAEMORRHAGE [None]
  - VITAMIN B12 DECREASED [None]
  - HEAD INJURY [None]
  - SUBDURAL HAEMATOMA [None]
